FAERS Safety Report 5148666-5 (Version None)
Quarter: 2006Q4

REPORT INFORMATION
  Report Type: 
  Country: None (occurrence: None)
  Receive Date: 20061107
  Receipt Date: 20061025
  Transmission Date: 20070319
  Serious: Yes (Death, Congenital Anomaly, Other)
  Sender: FDA-Public Use
  Company Number: 149173ISR

PATIENT

DRUGS (1)
  1. CARBAMAZEPINE [Suspect]
     Route: 064

REACTIONS (9)
  - CHROMOSOME ABNORMALITY [None]
  - CONGENITAL ANAEMIA [None]
  - CONGENITAL CENTRAL NERVOUS SYSTEM ANOMALY [None]
  - DRUG EXPOSURE DURING PREGNANCY [None]
  - HEART DISEASE CONGENITAL [None]
  - HERNIA CONGENITAL [None]
  - MULTIPLE CONGENITAL ABNORMALITIES [None]
  - RENAL DYSPLASIA [None]
  - STILLBIRTH [None]
